FAERS Safety Report 10668117 (Version 2)
Quarter: 2014Q4

REPORT INFORMATION
  Report Type: Report from Study
  Country: ES (occurrence: ES)
  Receive Date: 20141222
  Receipt Date: 20141222
  Transmission Date: 20150529
  Serious: Yes (Death, Life-Threatening, Disabling)
  Sender: FDA-Public Use
  Company Number: ES-ASTRAZENECA-2014SE46582

PATIENT
  Age: 59 Year
  Sex: Female

DRUGS (8)
  1. AZD5363 [Suspect]
     Active Substance: INVESTIGATIONAL PRODUCT
     Indication: NEOPLASM MALIGNANT
     Dosage: DOSE: 120 MG, DOSING FREQUENCY: 1, CYCLE NUMBER:3
     Route: 048
     Dates: start: 20140219, end: 20140308
  2. SF WITH POTASIUM [Suspect]
     Active Substance: POTASSIUM
     Dosage: 10 MEQ/L
     Route: 065
  3. PRIMPERAN [Suspect]
     Active Substance: METOCLOPRAMIDE HYDROCHLORIDE
     Route: 042
  4. FORTASEC [Concomitant]
     Active Substance: LOPERAMIDE HYDROCHLORIDE
     Indication: DIARRHOEA
     Route: 048
     Dates: start: 20140110, end: 20140521
  5. AZD5363 [Suspect]
     Active Substance: INVESTIGATIONAL PRODUCT
     Indication: NEOPLASM MALIGNANT
     Dosage: DOSE: 120 MG, DOSING FREQUENCY: 1, CYCLE NUMBER:4
     Route: 048
     Dates: start: 20140312, end: 20140329
  6. OMEPRAZOL [Suspect]
     Active Substance: OMEPRAZOLE
     Route: 042
  7. AZD5363 [Suspect]
     Active Substance: INVESTIGATIONAL PRODUCT
     Indication: NEOPLASM MALIGNANT
     Dosage: DOSE: 120 MG, DOSING FREQUENCY: 1, CYCLE NUMBER:1
     Route: 048
     Dates: start: 20140108, end: 20140125
  8. AZD5363 [Suspect]
     Active Substance: INVESTIGATIONAL PRODUCT
     Indication: NEOPLASM MALIGNANT
     Dosage: DOSE: 120 MG, DOSING FREQUENCY: 1, CYCLE NUMBER:2
     Route: 048
     Dates: start: 20140129, end: 20140215

REACTIONS (4)
  - Haematemesis [Fatal]
  - Nausea [None]
  - Vomiting [None]
  - Malaise [None]

NARRATIVE: CASE EVENT DATE: 20140621
